FAERS Safety Report 5075875-6 (Version None)
Quarter: 2006Q3

REPORT INFORMATION
  Report Type: 
  Country: None (occurrence: None)
  Receive Date: 20060803
  Receipt Date: 20060803
  Transmission Date: 20061208
  Serious: Yes (Hospitalization)
  Sender: FDA-Public Use
  Company Number: None

PATIENT
  Age: 64 Year
  Sex: Male

DRUGS (6)
  1. CAMPATH [Suspect]
     Indication: PROLYMPHOCYTIC LEUKAEMIA
     Dosage: 10MG SQ DAY #1 Q 3 WEEKS
  2. DOXORUBICIN [Suspect]
     Indication: PROLYMPHOCYTIC LEUKAEMIA
     Dosage: 50MG/ML IVP DAY 1 Q3WEEKS
  3. CYCLOPHOSPHAMIDE [Suspect]
     Indication: PROLYMPHOCYTIC LEUKAEMIA
     Dosage: 750MG/M2 IV DAY #1 Q3WEEKS
     Route: 042
  4. VINCRISTINE [Suspect]
     Indication: PROLYMPHOCYTIC LEUKAEMIA
     Dosage: 1.4 MG/M2 IVP DAY 1 Q3WEEKS
  5. PREDNISONE [Suspect]
     Indication: PROLYMPHOCYTIC LEUKAEMIA
     Dosage: 100MG PO DAYS 1-5 Q3 WEEKS
     Route: 048
  6. NEULASTA [Suspect]
     Indication: PROLYMPHOCYTIC LEUKAEMIA
     Dosage: 6MG SQ DAY 2 Q3WEEKS

REACTIONS (14)
  - ANOREXIA [None]
  - ASTHENIA [None]
  - BACTERIA STOOL IDENTIFIED [None]
  - BODY TEMPERATURE INCREASED [None]
  - CLOSTRIDIAL INFECTION [None]
  - DEHYDRATION [None]
  - FATIGUE [None]
  - FEBRILE NEUTROPENIA [None]
  - HEART RATE INCREASED [None]
  - NAUSEA [None]
  - RESPIRATORY RATE INCREASED [None]
  - SPLENOMEGALY [None]
  - THROMBOCYTOPENIA [None]
  - VOMITING [None]
